FAERS Safety Report 5497510-5 (Version None)
Quarter: 2007Q4

REPORT INFORMATION
  Report Type: 
  Country: None (occurrence: None)
  Receive Date: 20071025
  Receipt Date: 20061129
  Transmission Date: 20080405
  Serious: No
  Sender: FDA-Public Use
  Company Number: A0629441A

PATIENT
  Age: 83 Year
  Sex: Female

DRUGS (4)
  1. ADVAIR DISKUS 100/50 [Suspect]
     Indication: ASTHMA
     Dosage: 1PUFF PER DAY
     Route: 055
     Dates: start: 20060818
  2. DYAZIDE [Concomitant]
  3. PREMARIN [Concomitant]
  4. VITAMINS [Concomitant]

REACTIONS (2)
  - NERVOUSNESS [None]
  - TREMOR [None]
